FAERS Safety Report 5126031-4 (Version None)
Quarter: 2006Q4

REPORT INFORMATION
  Report Type: 
  Country: None (occurrence: None)
  Receive Date: 20061012
  Receipt Date: 20061003
  Transmission Date: 20070319
  Serious: Yes (Hospitalization)
  Sender: FDA-Public Use
  Company Number: FR-SANOFI-SYNTHELABO-A02200602509

PATIENT
  Sex: Female
  Weight: 1.68 kg

DRUGS (7)
  1. XANAX [Suspect]
     Indication: BIPOLAR DISORDER
     Route: 064
     Dates: start: 20051201, end: 20060806
  2. ANAFRANIL [Suspect]
     Indication: BIPOLAR DISORDER
     Route: 064
     Dates: start: 20060424, end: 20060806
  3. LARGACTIL [Suspect]
     Indication: BIPOLAR DISORDER
     Route: 064
     Dates: start: 20051201, end: 20060806
  4. ZOLPIDEM TARTRATE [Suspect]
     Indication: BIPOLAR DISORDER
     Route: 064
     Dates: start: 20051201, end: 20060806
  5. DEPAKOTE [Suspect]
     Indication: BIPOLAR DISORDER
     Route: 064
     Dates: start: 20060503, end: 20060806
  6. NOCTRAN [Concomitant]
     Indication: INTENTIONAL OVERDOSE
     Route: 064
     Dates: start: 20060401, end: 20060401
  7. SEROPRAM [Concomitant]
     Indication: BIPOLAR DISORDER
     Dosage: UNK
     Route: 064
     Dates: start: 20051201, end: 20060401

REACTIONS (9)
  - CAESAREAN SECTION [None]
  - DRUG EXPOSURE DURING PREGNANCY [None]
  - DRUG WITHDRAWAL SYNDROME NEONATAL [None]
  - NEONATAL DISORDER [None]
  - NEONATAL RESPIRATORY DISTRESS SYNDROME [None]
  - OXYGEN SATURATION DECREASED [None]
  - PLACENTA PRAEVIA [None]
  - PREMATURE BABY [None]
  - RESPIRATORY DISTRESS [None]
